FAERS Safety Report 6491574-8 (Version None)
Quarter: 2009Q4

REPORT INFORMATION
  Report Type: 
  Country: None (occurrence: None)
  Receive Date: 20091211
  Receipt Date: 20091202
  Transmission Date: 20100525
  Serious: Yes (Other)
  Sender: FDA-Public Use
  Company Number: JP-GENENTECH-294298

PATIENT
  Sex: Male

DRUGS (22)
  1. RITUXIMAB [Suspect]
     Indication: EXTRANODAL MARGINAL ZONE B-CELL LYMPHOMA (MALT TYPE)
     Dosage: 700 MG, UNK
     Route: 042
     Dates: start: 20081028
  2. RITUXIMAB [Suspect]
     Dosage: 680 MG, UNK
     Route: 042
     Dates: start: 20081125
  3. CYCLOPHOSPHAMIDE [Suspect]
     Indication: EXTRANODAL MARGINAL ZONE B-CELL LYMPHOMA (MALT TYPE)
     Dosage: 1400 MG, UNK
     Route: 065
     Dates: start: 20081029
  4. CYCLOPHOSPHAMIDE [Suspect]
     Dosage: 1300 MG, UNK
     Dates: start: 20081126
  5. DOXORUBICIN HCL [Suspect]
     Indication: EXTRANODAL MARGINAL ZONE B-CELL LYMPHOMA (MALT TYPE)
     Dosage: 94 MG, UNK
     Route: 065
     Dates: start: 20081029
  6. DOXORUBICIN HCL [Suspect]
     Dosage: 90 MG, UNK
     Dates: start: 20081126
  7. VINCRISTINE SULFATE [Suspect]
     Indication: EXTRANODAL MARGINAL ZONE B-CELL LYMPHOMA (MALT TYPE)
     Dosage: 2 MG, UNK
     Route: 065
     Dates: start: 20081029
  8. VINCRISTINE SULFATE [Suspect]
     Dosage: UNK
     Dates: start: 20081126
  9. CARVEDILOL [Concomitant]
     Indication: HYPERTENSION
     Dosage: 20 MG, QD
     Route: 048
     Dates: start: 20080902
  10. AMLODINE [Concomitant]
     Indication: HYPERTENSION
     Dosage: 10 MG, QD
     Route: 048
     Dates: start: 20080902
  11. DIOVAN [Concomitant]
     Indication: HYPERTENSION
     Dosage: 160 MG, QD
     Route: 048
     Dates: start: 20080902
  12. TAKEPRON [Concomitant]
     Indication: HYPERTENSION
     Dosage: 15 MG, QD
     Route: 048
     Dates: start: 20080902
  13. RENIVACE [Concomitant]
     Indication: HYPERTENSION
     Dosage: 5 MG, QD
     Route: 048
     Dates: start: 20080902
  14. ENTECAVIR HYDRATE [Concomitant]
     Indication: HEPATITIS B
     Dosage: 0.5 MG, QD
     Route: 048
     Dates: start: 20081024
  15. IBRUPROFEN [Concomitant]
     Indication: PROPHYLAXIS
     Dosage: 100 MG, UNK
     Route: 048
     Dates: start: 20081028
  16. IBRUPROFEN [Concomitant]
     Dosage: 100 MG, UNK
     Route: 048
     Dates: start: 20081125
  17. POLARAMINE [Concomitant]
     Indication: PROPHYLAXIS
     Dosage: 2 MG, UNK
     Route: 048
     Dates: start: 20081028
  18. POLARAMINE [Concomitant]
     Dosage: 2 MG, UNK
     Route: 048
     Dates: start: 20081125
  19. KYTRIL [Concomitant]
     Indication: PROPHYLAXIS
     Dosage: 3 MG, UNK
     Route: 042
     Dates: start: 20081029
  20. KYTRIL [Concomitant]
     Dosage: 3 MG, UNK
     Route: 042
     Dates: start: 20081126
  21. PRIMPERAN TAB [Concomitant]
     Indication: PROPHYLAXIS
     Dosage: 10 MG, UNK
     Route: 042
     Dates: start: 20081029
  22. PRIMPERAN TAB [Concomitant]
     Dosage: 10 MG, UNK
     Route: 042
     Dates: start: 20081126

REACTIONS (1)
  - FEBRILE NEUTROPENIA [None]
